FAERS Safety Report 7703659-6 (Version None)
Quarter: 2011Q3

REPORT INFORMATION
  Report Type: 
  Country: None (occurrence: None)
  Receive Date: 20110823
  Receipt Date: 20110812
  Transmission Date: 20111222
  Serious: Yes (Hospitalization)
  Sender: FDA-Public Use
  Company Number: US-BAXTER-2011BH022026

PATIENT
  Age: 68 Year
  Sex: Male
  Weight: 74 kg

DRUGS (2)
  1. DIANEAL [Suspect]
     Indication: PERITONEAL DIALYSIS
     Route: 033
  2. DIANEAL [Suspect]
     Indication: PERITONEAL DIALYSIS
     Route: 033

REACTIONS (8)
  - DEHYDRATION [None]
  - ABDOMINAL PAIN [None]
  - BLOOD GLUCOSE DECREASED [None]
  - LEUKOCYTOSIS [None]
  - VOMITING [None]
  - NAUSEA [None]
  - AMPUTATION STUMP PAIN [None]
  - PERIPHERAL COLDNESS [None]
